FAERS Safety Report 6649024-4 (Version None)
Quarter: 2010Q1

REPORT INFORMATION
  Report Type: 
  Country: None (occurrence: None)
  Receive Date: 20100324
  Receipt Date: 20100310
  Transmission Date: 20100710
  Serious: Yes (Other)
  Sender: FDA-Public Use
  Company Number: SK-GENENTECH-299556

PATIENT
  Sex: Female

DRUGS (6)
  1. OMALIZUMAB [Suspect]
     Indication: ASTHMA
     Dosage: 300 MG, Q4W
     Route: 058
     Dates: start: 20071227, end: 20100217
  2. SERETIDE DISKUS [Concomitant]
     Indication: DRUG USE FOR UNKNOWN INDICATION
     Dosage: UNK
     Dates: start: 20020101
  3. PREDNISONE [Concomitant]
     Indication: DRUG USE FOR UNKNOWN INDICATION
     Dosage: UNK
     Dates: start: 20030101
  4. AFONILUM [Concomitant]
     Indication: DRUG USE FOR UNKNOWN INDICATION
     Dosage: UNK
     Dates: start: 20030101
  5. LORATADINE [Concomitant]
     Indication: DRUG USE FOR UNKNOWN INDICATION
     Dosage: UNK
     Dates: start: 20030101
  6. ATROVENT [Concomitant]
     Indication: DRUG USE FOR UNKNOWN INDICATION
     Dosage: UNK
     Dates: start: 20030101

REACTIONS (2)
  - PRURITUS [None]
  - TONGUE OEDEMA [None]
